FAERS Safety Report 18881284 (Version 2)
Quarter: 2021Q3

REPORT INFORMATION
  Report Type: Report from Study
  Country: US (occurrence: US)
  Receive Date: 20210212
  Receipt Date: 20210728
  Transmission Date: 20211014
  Serious: No
  Sender: FDA-Public Use
  Company Number: NVSC2021US027503

PATIENT
  Sex: Female

DRUGS (1)
  1. COSENTYX [Suspect]
     Active Substance: SECUKINUMAB
     Indication: PSORIASIS
     Dosage: 300 MG, QMO, STARTED LATE NOVEMBER/ EARLY DECEMBER 2020, BENEATH THE SKIN, VIA INJECTION
     Route: 058

REACTIONS (1)
  - Therapeutic product effect decreased [Not Recovered/Not Resolved]
